FAERS Safety Report 20702671 (Version 2)
Quarter: 2022Q2

REPORT INFORMATION
  Report Type: Report from Study
  Country: FR (occurrence: None)
  Receive Date: 20220412
  Receipt Date: 20220419
  Transmission Date: 20220720
  Serious: No
  Sender: FDA-Public Use
  Company Number: FR-Merck Healthcare KGaA-9313018

PATIENT
  Age: 7 Year
  Sex: Male
  Weight: 18 kg

DRUGS (2)
  1. SAIZEN [Suspect]
     Active Substance: SOMATROPIN
     Indication: Growth retardation
     Route: 058
     Dates: start: 20220402
  2. SAIZEN [Suspect]
     Active Substance: SOMATROPIN
     Indication: Small for dates baby

REACTIONS (2)
  - Injection site bruising [Unknown]
  - Off label use [Unknown]

NARRATIVE: CASE EVENT DATE: 20220401
